FAERS Safety Report 8844979 (Version 1)
Quarter: 2012Q4

REPORT INFORMATION
  Report Type: Spontaneous
  Country: US (occurrence: None)
  Receive Date: 20121002
  Receipt Date: 20121002
  Transmission Date: 20130627
  Serious: Yes (Hospitalization)
  Sender: FDA-Public Use
  Company Number: RB-37577-2012

PATIENT
  Age: 27 Year
  Sex: Female

DRUGS (4)
  1. SUBOXONE [Suspect]
     Indication: PAIN MANAGEMENT
     Route: 060
     Dates: start: 20110524, end: 201202
  2. KLONOPIN [Suspect]
     Indication: POST-TRAUMATIC STRESS DISORDER
     Route: 048
     Dates: end: 201202
  3. TRAZODONE [Concomitant]
  4. ZOLOFT [Concomitant]

REACTIONS (4)
  - Off label use [None]
  - Drug withdrawal syndrome [None]
  - Pain [None]
  - Weight decreased [None]
